FAERS Safety Report 7055753-3 (Version None)
Quarter: 2010Q4

REPORT INFORMATION
  Report Type: 
  Country: None (occurrence: None)
  Receive Date: 20101019
  Receipt Date: 20101019
  Transmission Date: 20110411
  Serious: Yes (Death)
  Sender: FDA-Public Use
  Company Number: None

PATIENT
  Age: 52 Year
  Sex: Female
  Weight: 97.0698 kg

DRUGS (6)
  1. MACUGEN [Suspect]
     Indication: DIABETIC RETINAL OEDEMA
     Dosage: 0.3MG OS INTRAVITREAL
     Dates: start: 20100805, end: 20101004
  2. SIMVASTATIN [Concomitant]
  3. FUROSEMIDE [Concomitant]
  4. CARVEDILOL [Concomitant]
  5. SYSTANE DROPS [Concomitant]
  6. ALEVE (CAPLET) [Concomitant]

REACTIONS (1)
  - DYSPNOEA [None]
